FAERS Safety Report 15515818 (Version 1)
Quarter: 2018Q4

REPORT INFORMATION
  Report Type: Spontaneous
  Country: NL (occurrence: NL)
  Receive Date: 20181017
  Receipt Date: 20181017
  Transmission Date: 20190205
  Serious: Yes (Other)
  Sender: FDA-Public Use
  Company Number: NL-AUROBINDO-AUR-APL-2018-050448

PATIENT
  Age: 50 Year
  Sex: Male

DRUGS (7)
  1. COLECALCIFEROL [Concomitant]
     Active Substance: CHOLECALCIFEROL
     Indication: PRODUCT USED FOR UNKNOWN INDICATION
     Dosage: 2 DOSAGE FORM, 2 WEEKS, 1 X / 2 WEEKS 2 AMPOULES OF 1 ML
     Route: 065
     Dates: start: 20171018
  2. ALFACALCIDOL [Concomitant]
     Active Substance: ALFACALCIDOL
     Indication: PRODUCT USED FOR UNKNOWN INDICATION
     Dosage: 1 DOSAGE FORM,1 X DAILY 1-2 CAPSULES
     Route: 065
     Dates: start: 20130610
  3. COLECALCIFEROL [Concomitant]
     Active Substance: CHOLECALCIFEROL
     Indication: PRODUCT USED FOR UNKNOWN INDICATION
     Dosage: UNK
     Route: 065
     Dates: start: 20180820
  4. PRAVASTATIN TABLETS 40MG [Suspect]
     Active Substance: PRAVASTATIN
     Indication: CARDIOVASCULAR EVENT PROPHYLAXIS
     Dosage: 40 MILLIGRAM, DAILY,1X PER DAY 1 PIECE
     Route: 065
     Dates: start: 20180806, end: 20180817
  5. TAMSULOSIN [Concomitant]
     Active Substance: TAMSULOSIN
     Indication: PRODUCT USED FOR UNKNOWN INDICATION
     Dosage: UNK MILLIGRAM, DAILY,1 X DAILY 1 CAPSULE
     Route: 065
     Dates: start: 20171018
  6. LOSARTAN. [Concomitant]
     Active Substance: LOSARTAN
     Indication: PRODUCT USED FOR UNKNOWN INDICATION
     Dosage: 50 MILLIGRAM, DAILY,1 X DAILY 1 TABLET IN THE MORNING
     Route: 065
     Dates: start: 20130802
  7. LOSARTAN SANDOZ                    /01121602/ [Concomitant]
     Indication: PRODUCT USED FOR UNKNOWN INDICATION
     Dosage: 25 MILLIGRAM, DAILY,1XDAILY 1 TABLET
     Route: 065
     Dates: start: 20171204

REACTIONS (2)
  - Myalgia [Unknown]
  - Loss of consciousness [Recovered/Resolved]

NARRATIVE: CASE EVENT DATE: 20180813
